FAERS Safety Report 7251319-0 (Version None)
Quarter: 2011Q1

REPORT INFORMATION
  Report Type: 
  Country: None (occurrence: None)
  Receive Date: 20110128
  Receipt Date: 20110121
  Transmission Date: 20110831
  Serious: Yes (Other)
  Sender: FDA-Public Use
  Company Number: US-US-EMD SERONO, INC.-7006464

PATIENT
  Sex: Female

DRUGS (3)
  1. REBIF [Suspect]
     Route: 058
     Dates: start: 20100101, end: 20100101
  2. REBIF [Suspect]
     Indication: PRODUCT USED FOR UNKNOWN INDICATION
     Route: 058
     Dates: start: 20100427, end: 20100101
  3. REBIF [Suspect]
     Route: 058
     Dates: start: 20100101

REACTIONS (5)
  - BLADDER SPASM [None]
  - CYSTITIS [None]
  - BLADDER PROLAPSE [None]
  - SLEEP DISORDER [None]
  - HYPOAESTHESIA FACIAL [None]
